FAERS Safety Report 8963795 (Version 1)
Quarter: 2012Q4

REPORT INFORMATION
  Report Type: 
  Country: US (occurrence: US)
  Receive Date: 20121213
  Receipt Date: 20121213
  Transmission Date: 20130627
  Serious: No
  Sender: FDA-Public Use
  Company Number: US-BAYER-2012-129349

PATIENT

DRUGS (1)
  1. ALEVE GELCAP [Suspect]

REACTIONS (2)
  - Overdose [None]
  - Drug ineffective [None]
